FAERS Safety Report 12052090 (Version 1)
Quarter: 2016Q1

REPORT INFORMATION
  Report Type: Spontaneous
  Country: US (occurrence: None)
  Receive Date: 20160208
  Receipt Date: 20160208
  Transmission Date: 20160526
  Serious: No
  Sender: FDA-Public Use
  Company Number: None

PATIENT

DRUGS (3)
  1. LITHIUM. [Suspect]
     Active Substance: LITHIUM
  2. SEROQUEL [Suspect]
     Active Substance: QUETIAPINE FUMARATE
  3. DEPAKOTE [Suspect]
     Active Substance: DIVALPROEX SODIUM

REACTIONS (2)
  - Feeling abnormal [None]
  - Product quality issue [None]
